FAERS Safety Report 8432675-4 (Version None)
Quarter: 2012Q2

REPORT INFORMATION
  Report Type: 
  Country: None (occurrence: None)
  Receive Date: 20120607
  Receipt Date: 20120522
  Transmission Date: 20120825
  Serious: Yes (Congenital Anomaly)
  Sender: FDA-Public Use
  Company Number: TPA2012A03066

PATIENT
  Sex: 0

DRUGS (1)
  1. ACTOPLUS MET [Suspect]
     Dosage: TRANSPLACENTAL
     Route: 064

REACTIONS (2)
  - TRISOMY 21 [None]
  - MATERNAL DRUGS AFFECTING FOETUS [None]
